FAERS Safety Report 10399709 (Version 1)
Quarter: 2014Q3

REPORT INFORMATION
  Report Type: Report from Study
  Country: KR (occurrence: KR)
  Receive Date: 20140821
  Receipt Date: 20140821
  Transmission Date: 20150326
  Serious: Yes (Hospitalization)
  Sender: FDA-Public Use
  Company Number: KR-EXELIXIS-XL18414004637

PATIENT
  Age: 63 Year
  Sex: Male
  Weight: 56.5 kg

DRUGS (11)
  1. ITOPRIDE HCL [Concomitant]
  2. MORPHINE SULFATE. [Concomitant]
     Active Substance: MORPHINE SULFATE
  3. XL184 [Suspect]
     Active Substance: CABOZANTINIB
     Dosage: 40 MG, QD
     Route: 048
     Dates: start: 20140812
  4. MEGESTROL [Concomitant]
     Active Substance: MEGESTROL
  5. LACTULOSE. [Concomitant]
     Active Substance: LACTULOSE
  6. PHAZYME COMPLEX [Concomitant]
  7. AMLODIPINE BESYLATE. [Concomitant]
     Active Substance: AMLODIPINE BESYLATE
  8. HYDROCHLOROTHIAZIDE. [Concomitant]
     Active Substance: HYDROCHLOROTHIAZIDE
  9. XL184 [Suspect]
     Active Substance: CABOZANTINIB
     Indication: HEPATOCELLULAR CARCINOMA
     Dosage: 60 MG, QD
     Route: 048
     Dates: start: 20140701, end: 20140812
  10. AROMAMIE GOLD [Concomitant]
  11. SILYMARIN [Concomitant]
     Active Substance: MILK THISTLE

REACTIONS (1)
  - Ascites [Recovered/Resolved]

NARRATIVE: CASE EVENT DATE: 20140731
